FAERS Safety Report 12922933 (Version 2)
Quarter: 2017Q1

REPORT INFORMATION
  Report Type: Spontaneous
  Country: US (occurrence: US)
  Receive Date: 20161108
  Receipt Date: 20170328
  Transmission Date: 20170428
  Serious: Yes (Hospitalization, Other)
  Sender: FDA-Public Use
  Company Number: US-PFIZER INC-2016516335

PATIENT
  Age: 54 Year
  Sex: Male

DRUGS (5)
  1. DEPO-TESTOSTERONE [Suspect]
     Active Substance: TESTOSTERONE CYPIONATE
     Indication: HORMONE REPLACEMENT THERAPY
     Dosage: UNK, EVERY 2 WEEKS
     Dates: start: 2014, end: 2015
  2. ANDRODERM [Suspect]
     Active Substance: TESTOSTERONE
     Indication: HORMONE REPLACEMENT THERAPY
     Dosage: UNK, 1X/DAY
     Dates: start: 2002, end: 2004
  3. ANDRODERM [Suspect]
     Active Substance: TESTOSTERONE
     Dosage: UNK, 1X/DAY
     Dates: start: 2013, end: 2014
  4. TESTIM [Suspect]
     Active Substance: TESTOSTERONE
     Indication: HORMONE REPLACEMENT THERAPY
     Dosage: UNK, DAILY
     Dates: start: 2012
  5. ANDROGEL [Suspect]
     Active Substance: TESTOSTERONE
     Indication: HORMONE REPLACEMENT THERAPY
     Dosage: UNK, ONE PACKET PER DAY
     Dates: start: 2005, end: 2011

REACTIONS (8)
  - Thrombosis [Unknown]
  - Cerebrovascular accident [Unknown]
  - Impaired work ability [Unknown]
  - Embolism venous [Unknown]
  - Quality of life decreased [Not Recovered/Not Resolved]
  - Deep vein thrombosis [Unknown]
  - Pulmonary embolism [Unknown]
  - Myocardial infarction [Unknown]

NARRATIVE: CASE EVENT DATE: 2004
